FAERS Safety Report 18912841 (Version 1)
Quarter: 2021Q1

REPORT INFORMATION
  Report Type: Spontaneous
  Country: US (occurrence: US)
  Receive Date: 20210219
  Receipt Date: 20210219
  Transmission Date: 20210420
  Serious: No
  Sender: FDA-Public Use
  Company Number: US-DRREDDYS-USA/USA/21/0131791

PATIENT
  Age: 20 Year
  Sex: Female

DRUGS (4)
  1. IMMUNOGLOBULINS [Concomitant]
     Indication: ENCEPHALITIS AUTOIMMUNE
     Route: 042
  2. RITUXIMAB. [Concomitant]
     Active Substance: RITUXIMAB
     Indication: ENCEPHALITIS AUTOIMMUNE
  3. LORAZEPAM INJECTION USP, 2 MG/ML AND 4 MG/ML [Suspect]
     Active Substance: LORAZEPAM
     Indication: CATATONIA
     Dosage: TITRATION
  4. LORAZEPAM INJECTION USP, 2 MG/ML AND 4 MG/ML [Suspect]
     Active Substance: LORAZEPAM
     Dosage: LOW?DOSE

REACTIONS (1)
  - Sedation [Unknown]
